FAERS Safety Report 5307210-X (Version None)
Quarter: 2007Q2

REPORT INFORMATION
  Report Type: 
  Country: None (occurrence: None)
  Receive Date: 20070425
  Receipt Date: 20070413
  Transmission Date: 20071010
  Serious: Yes (Disabling, Other)
  Sender: FDA-Public Use
  Company Number: AU-GENENTECH-220999

PATIENT
  Weight: 80 kg

DRUGS (7)
  1. HERCEPTIN [Suspect]
     Indication: BREAST CANCER
     Dosage: 160 MG, 1/WEEK
     Dates: start: 20050505, end: 20051021
  2. HERCEPTIN [Suspect]
     Dosage: 500 MG, Q3W
     Dates: start: 20051028, end: 20060505
  3. TAXOTERE [Suspect]
     Indication: BREAST CANCER
     Dosage: 190 MG, Q3W
     Dates: start: 20050426, end: 20050923
  4. DEXAMETHASONE 0.5MG TAB [Concomitant]
     Indication: DRUG USE FOR UNKNOWN INDICATION
     Dosage: 8 MG, UNK
  5. ONDANSETRON [Concomitant]
     Indication: DRUG USE FOR UNKNOWN INDICATION
  6. LISINOPRIL [Concomitant]
     Indication: DRUG USE FOR UNKNOWN INDICATION
     Dosage: 5 MG, UNK
     Route: 048
  7. BENDROFLUAZIDE [Concomitant]
     Indication: DRUG USE FOR UNKNOWN INDICATION
     Dosage: 5 MG, UNK
     Route: 048

REACTIONS (1)
  - PARAPLEGIA [None]
